FAERS Safety Report 20878066 (Version 1)
Quarter: 2022Q2

REPORT INFORMATION
  Report Type: Spontaneous
  Country: US (occurrence: None)
  Receive Date: 20220525
  Receipt Date: 20220525
  Transmission Date: 20220721
  Serious: Yes (Other)
  Sender: FDA-Public Use
  Company Number: None

PATIENT
  Age: 34 Year
  Sex: Female
  Weight: 50.4 kg

DRUGS (6)
  1. FIASP [Suspect]
     Active Substance: INSULIN ASPART
     Indication: Type 1 diabetes mellitus
     Route: 058
     Dates: start: 20220519, end: 20220525
  2. LANTUS [Concomitant]
     Active Substance: INSULIN GLARGINE
  3. FIASP [Concomitant]
  4. HUMALOG [Concomitant]
  5. XYZAL [Concomitant]
     Active Substance: LEVOCETIRIZINE DIHYDROCHLORIDE
  6. DAILY MULTIVITAMIN [Concomitant]

REACTIONS (4)
  - Drug delivery system malfunction [None]
  - Incorrect dose administered [None]
  - Blood glucose increased [None]
  - Device leakage [None]

NARRATIVE: CASE EVENT DATE: 20220525
